FAERS Safety Report 6596448-X (Version None)
Quarter: 2010Q1

REPORT INFORMATION
  Report Type: 
  Country: None (occurrence: None)
  Receive Date: 20100223
  Receipt Date: 20100208
  Transmission Date: 20100710
  Serious: Yes (Congenital Anomaly)
  Sender: FDA-Public Use
  Company Number: FR-AMGEN-US393651

PATIENT
  Sex: Female

DRUGS (1)
  1. ENBREL [Suspect]
     Dosage: UNKNOWN
     Route: 050

REACTIONS (2)
  - CONGENITAL EYE DISORDER [None]
  - DRUG EXPOSURE DURING PREGNANCY [None]
